FAERS Safety Report 5245995-1 (Version None)
Quarter: 2007Q1

REPORT INFORMATION
  Report Type: 
  Country: None (occurrence: None)
  Receive Date: 20070220
  Receipt Date: 20070201
  Transmission Date: 20070707
  Serious: Yes (Life-Threatening, Hospitalization)
  Sender: FDA-Public Use
  Company Number: DSA_29321_2007

PATIENT
  Age: 23 Year
  Sex: Female
  Weight: 58 kg

DRUGS (10)
  1. LORAZEPAM [Suspect]
     Dosage: 13 MG ONCE PO
     Route: 047
  2. OXYCODONE HCL [Suspect]
     Dosage: 170 MG ONCE PO
     Route: 048
  3. OXYCODONE HCL [Suspect]
     Dosage: 55 MG ONCE PO
     Route: 048
  4. OXYCODONE HCL [Suspect]
     Indication: PAIN IN EXTREMITY
     Dosage: DF UNK PO
     Route: 048
  5. MORPHINE [Suspect]
     Dosage: 230 MG ONCE PO
     Route: 048
  6. AMITRIPTYLINE HYDROCHLORIDE [Suspect]
     Dosage: 250 MG ONCE PO
     Route: 048
  7. AMITRIPTYLINE HYDROCHLORIDE [Suspect]
     Indication: PAIN IN EXTREMITY
     Dosage: DF UNK PO
     Route: 048
  8. VALPROATE SODIUM [Suspect]
     Dosage: 2000 MG ONCE PO
     Route: 048
  9. VALPROATE SODIUM [Suspect]
     Indication: PAIN IN EXTREMITY
     Dosage: DF UNK PO
     Route: 048
  10. CODEINE PHOSPHATE [Concomitant]

REACTIONS (10)
  - ANXIETY [None]
  - BLOOD PRESSURE DECREASED [None]
  - CYANOSIS [None]
  - DEPRESSION [None]
  - HEART RATE INCREASED [None]
  - INTENTIONAL OVERDOSE [None]
  - LOSS OF CONSCIOUSNESS [None]
  - PAIN IN EXTREMITY [None]
  - RESPIRATORY RATE DECREASED [None]
  - SUICIDE ATTEMPT [None]
